FAERS Safety Report 13900839 (Version 1)
Quarter: 2017Q3

REPORT INFORMATION
  Report Type: Spontaneous
  Country: CA (occurrence: CA)
  Receive Date: 20170824
  Receipt Date: 20170824
  Transmission Date: 20171127
  Serious: Yes (Life-Threatening)
  Sender: FDA-Public Use
  Company Number: CA-TEVA-799289ACC

PATIENT
  Age: 89 Year
  Sex: Female
  Weight: 59.02 kg

DRUGS (9)
  1. RAMIPRIL. [Concomitant]
     Active Substance: RAMIPRIL
  2. GABAPENTIN. [Suspect]
     Active Substance: GABAPENTIN
     Indication: PARAESTHESIA
     Dosage: 600 MILLIGRAM DAILY;
  3. GABAPENTIN. [Suspect]
     Active Substance: GABAPENTIN
     Indication: PAIN IN EXTREMITY
  4. REACTINE [Concomitant]
     Active Substance: CETIRIZINE HYDROCHLORIDE
  5. WARFARIN [Concomitant]
     Active Substance: WARFARIN
  6. METFORMIN [Concomitant]
     Active Substance: METFORMIN HYDROCHLORIDE
  7. OMEPRAZOLE. [Concomitant]
     Active Substance: OMEPRAZOLE
  8. ZOPICLONE [Concomitant]
     Active Substance: ZOPICLONE
  9. AMLODIPINE [Concomitant]
     Active Substance: AMLODIPINE BESYLATE

REACTIONS (6)
  - Abdominal distension [Unknown]
  - Nausea [Unknown]
  - Peripheral swelling [Unknown]
  - Gastrointestinal haemorrhage [Unknown]
  - Malaise [Unknown]
  - Abdominal pain upper [Unknown]
